FAERS Safety Report 6083566-8 (Version None)
Quarter: 2009Q1

REPORT INFORMATION
  Report Type: 
  Country: None (occurrence: None)
  Receive Date: 20090219
  Receipt Date: 20090209
  Transmission Date: 20090719
  Serious: Yes (Hospitalization)
  Sender: FDA-Public Use
  Company Number: PHHO2006US16839

PATIENT
  Sex: Female
  Weight: 68 kg

DRUGS (3)
  1. DIOVAN T30230+ [Suspect]
     Indication: HYPERTENSION
     Dosage: 320 MG, QD
     Route: 048
     Dates: start: 20060821, end: 20060907
  2. HYDROCHLOROTHIAZIDE T08766+ [Suspect]
     Dosage: 25 MG, QD
  3. AMLODIPINE [Suspect]
     Dosage: 10 MG, QD

REACTIONS (11)
  - ABASIA [None]
  - ASTHENIA [None]
  - ATAXIA [None]
  - CHRONIC OBSTRUCTIVE PULMONARY DISEASE [None]
  - FUNGAL SKIN INFECTION [None]
  - HYPOMAGNESAEMIA [None]
  - HYPONATRAEMIA [None]
  - MONONEUROPATHY [None]
  - RENAL FAILURE ACUTE [None]
  - RHABDOMYOLYSIS [None]
  - URINARY TRACT INFECTION [None]
